FAERS Safety Report 22847811 (Version 3)
Quarter: 2024Q1

REPORT INFORMATION
  Report Type: Spontaneous
  Country: CA (occurrence: CA)
  Receive Date: 20230822
  Receipt Date: 20240311
  Transmission Date: 20240410
  Serious: Yes (Other)
  Sender: FDA-Public Use
  Company Number: CA-VIIV HEALTHCARE LIMITED-CA2023079642

PATIENT
  Age: 71 Year
  Sex: Male

DRUGS (8)
  1. RILPIVIRINE [Suspect]
     Active Substance: RILPIVIRINE
     Indication: HIV infection
     Dosage: UNK UNK, Q2M, (600MG/3ML) CABOTEGRAVIR INJECTION AND (900MG/3ML) RILPIVIRINE INJECTION
     Route: 030
     Dates: start: 20220309
  2. RILPIVIRINE [Suspect]
     Active Substance: RILPIVIRINE
     Dosage: UNK UNK, Q2M,(600MG/3ML) CABOTEGRAVIR (900MG/3ML) RILPIVIRINE
     Route: 030
  3. RILPIVIRINE [Suspect]
     Active Substance: RILPIVIRINE
     Dosage: UNK UNK, Q2M,(600MG/3ML) CABOTEGRAVIR (900MG/3ML) RILPIVIRINE
     Route: 030
  4. RILPIVIRINE [Suspect]
     Active Substance: RILPIVIRINE
     Dosage: UNK UNK, Q2M,(600MG/3ML) CABOTEGRAVIR (900MG/3ML) RILPIVIRINE
     Route: 030
  5. CABOTEGRAVIR [Suspect]
     Active Substance: CABOTEGRAVIR
     Indication: HIV infection
     Dosage: UNK UNK, Q2M, (600MG/3ML) CABOTEGRAVIR INJECTION AND (900MG/3ML) RILPIVIRINE INJECTION
     Route: 030
     Dates: start: 20220309
  6. CABOTEGRAVIR [Suspect]
     Active Substance: CABOTEGRAVIR
     Dosage: UNK UNK, Q2M,(600MG/3ML) CABOTEGRAVIR (900MG/3ML) RILPIVIRINE
     Route: 030
  7. CABOTEGRAVIR [Suspect]
     Active Substance: CABOTEGRAVIR
     Dosage: UNK UNK, Q2M,(600MG/3ML) CABOTEGRAVIR (900MG/3ML) RILPIVIRINE
     Route: 030
  8. CABOTEGRAVIR [Suspect]
     Active Substance: CABOTEGRAVIR
     Dosage: UNK UNK, Q2M,(600MG/3ML) CABOTEGRAVIR (900MG/3ML) RILPIVIRINE
     Route: 030

REACTIONS (4)
  - Hernia repair [Unknown]
  - Back pain [Unknown]
  - Nocturia [Not Recovered/Not Resolved]
  - Prostatomegaly [Unknown]

NARRATIVE: CASE EVENT DATE: 20230605
